FAERS Safety Report 4604564-4 (Version None)
Quarter: 2005Q2

REPORT INFORMATION
  Report Type: 
  Country: None (occurrence: None)
  Receive Date: 20050223
  Receipt Date: 20041202
  Transmission Date: 20051028
  Serious: No
  Sender: FDA-Public Use
  Company Number: PHEH2004US12753

PATIENT
  Sex: Female

DRUGS (4)
  1. ZELNORM [Suspect]
     Indication: IRRITABLE BOWEL SYNDROME
     Dosage: 6 MG, BID
     Dates: start: 20041123, end: 20041127
  2. NEXIUM [Concomitant]
  3. TRAZODONE HCL [Concomitant]
  4. EFFEXOR [Concomitant]

REACTIONS (3)
  - DYSPNOEA [None]
  - FEELING ABNORMAL [None]
  - PALPITATIONS [None]
